FAERS Safety Report 5052745-0 (Version None)
Quarter: 2006Q3

REPORT INFORMATION
  Report Type: 
  Country: None (occurrence: None)
  Receive Date: 20060717
  Receipt Date: 20060711
  Transmission Date: 20061208
  Serious: Yes (Hospitalization)
  Sender: FDA-Public Use
  Company Number: PL-MERCK-0607POL00006

PATIENT
  Age: 56 Year
  Sex: Female

DRUGS (3)
  1. SINGULAIR [Suspect]
     Indication: ASTHMA
     Route: 048
     Dates: start: 20060501, end: 20060501
  2. SALMETEROL XINAFOATE [Concomitant]
     Indication: ASTHMA
     Route: 065
     Dates: start: 20060501, end: 20060501
  3. FLUTICASONE PROPIONATE [Concomitant]
     Indication: ASTHMA
     Route: 065
     Dates: start: 20060501, end: 20060501

REACTIONS (1)
  - DYSPNOEA [None]
